FAERS Safety Report 4998871-3 (Version None)
Quarter: 2006Q2

REPORT INFORMATION
  Report Type: 
  Country: None (occurrence: None)
  Receive Date: 20060510
  Receipt Date: 20051222
  Transmission Date: 20061013
  Serious: Yes (Death, Hospitalization)
  Sender: FDA-Public Use
  Company Number: US-MERCK-0512USA03657

PATIENT
  Age: 56 Year
  Sex: Male
  Weight: 82 kg

DRUGS (16)
  1. VIOXX [Suspect]
     Indication: BACK PAIN
     Route: 048
     Dates: start: 20010601, end: 20020105
  2. VIOXX [Suspect]
     Indication: LIMB DISCOMFORT
     Route: 048
     Dates: start: 20010601, end: 20020105
  3. ASPIRIN [Concomitant]
     Indication: PAIN
     Route: 065
  4. TYLENOL [Concomitant]
     Route: 065
     Dates: start: 19980101, end: 20020105
  5. WELLBUTRIN [Concomitant]
     Indication: EX-SMOKER
     Route: 065
     Dates: start: 20000101, end: 20010101
  6. NAPROXEN [Concomitant]
     Route: 065
  7. IBUPROFEN [Concomitant]
     Route: 065
  8. VOLTAREN [Concomitant]
     Indication: PAIN
     Route: 065
  9. PREVACID [Concomitant]
     Indication: GASTRIC DISORDER
     Route: 065
  10. RELAFEN [Concomitant]
     Indication: PAIN
     Route: 065
     Dates: start: 20000101, end: 20000101
  11. AMBIEN [Concomitant]
     Route: 065
  12. VIAGRA [Concomitant]
     Indication: ERECTILE DYSFUNCTION
     Route: 065
  13. NEXIUM [Concomitant]
     Indication: GASTRIC DISORDER
     Route: 065
  14. PROTONIX [Concomitant]
     Indication: GASTRIC DISORDER
     Route: 065
  15. KLONOPIN [Concomitant]
     Indication: GENERALISED ANXIETY DISORDER
     Route: 065
     Dates: start: 20011215, end: 20020105
  16. NICORETTE [Concomitant]
     Indication: EX-SMOKER
     Route: 065

REACTIONS (7)
  - CARDIAC DISORDER [None]
  - CHEST PAIN [None]
  - DYSPNOEA [None]
  - GASTRIC DISORDER [None]
  - HERNIA [None]
  - MYOCARDIAL INFARCTION [None]
  - SUDDEN CARDIAC DEATH [None]
